FAERS Safety Report 16202661 (Version 5)
Quarter: 2020Q3

REPORT INFORMATION
  Report Type: Report from Study
  Country: IT (occurrence: IT)
  Receive Date: 20190416
  Receipt Date: 20191017
  Transmission Date: 20201104
  Serious: Yes (Hospitalization)
  Sender: FDA-Public Use
  Company Number: IT-ROCHE-2215381

PATIENT
  Age: 56 Year
  Sex: Male
  Weight: 74 kg

DRUGS (12)
  1. PREGABALIN. [Concomitant]
     Active Substance: PREGABALIN
     Route: 048
     Dates: start: 20181110
  2. DIPIRIDAMOL [Concomitant]
     Route: 042
     Dates: start: 20190412, end: 20190412
  3. OLMESARTAN [Concomitant]
     Active Substance: OLMESARTAN
     Route: 048
     Dates: start: 20181110
  4. AMLODIPINE [Concomitant]
     Active Substance: AMLODIPINE BESYLATE
     Route: 048
     Dates: start: 20181110
  5. VITAMIN C [Concomitant]
     Active Substance: ASCORBIC ACID
     Indication: INFECTION PROPHYLAXIS
     Route: 048
  6. NERIXIA [Concomitant]
     Active Substance: NERIDRONIC ACID
     Indication: OSTEOPOROSIS
     Route: 042
     Dates: start: 20190402, end: 20190402
  7. EMICIZUMAB. [Suspect]
     Active Substance: EMICIZUMAB
     Indication: FACTOR VIII DEFICIENCY
     Dosage: MOST RECENT DOSE OF EMICIZUMAB 1.5 MG/KG PRIOR TO SAE ONSET ON 08/NOV/2018
     Route: 058
     Dates: start: 20180321
  8. DELTACORTENE [Concomitant]
     Active Substance: PREDNISONE
     Indication: TENDON DISORDER
     Route: 048
     Dates: start: 20181220, end: 20181222
  9. DICLOFENAC [Concomitant]
     Active Substance: DICLOFENAC
     Route: 048
     Dates: start: 20181110
  10. BISOPROLOL [Concomitant]
     Active Substance: BISOPROLOL
     Route: 048
     Dates: start: 20181111
  11. AMLODIPINE [Concomitant]
     Active Substance: AMLODIPINE BESYLATE
     Route: 048
     Dates: start: 20181214
  12. LANSOPRAZOLO [Concomitant]
     Active Substance: LANSOPRAZOLE
     Indication: PROPHYLAXIS
     Route: 048
     Dates: start: 20181011

REACTIONS (1)
  - Acute myocardial infarction [Recovered/Resolved]

NARRATIVE: CASE EVENT DATE: 20181110
